FAERS Safety Report 7920239-8 (Version None)
Quarter: 2011Q4

REPORT INFORMATION
  Report Type: 
  Country: None (occurrence: None)
  Receive Date: 20111117
  Receipt Date: 20111115
  Transmission Date: 20120403
  Serious: Yes (Hospitalization)
  Sender: FDA-Public Use
  Company Number: US-PFIZER INC-2011172057

PATIENT
  Sex: Female
  Weight: 68.2 kg

DRUGS (9)
  1. CALCIUM [Concomitant]
     Dosage: UNK
  2. ACETAMINOPHEN [Concomitant]
     Dosage: UNK
  3. OXYCODONE [Concomitant]
     Dosage: UNK
  4. DOXORUBICIN HCL [Suspect]
     Indication: SARCOMA
     Dosage: 130 MG, UNK
     Dates: start: 20110628, end: 20110809
  5. VITAMIN D [Concomitant]
     Dosage: UNK
  6. MAGNESIUM CITRATE [Concomitant]
     Dosage: UNK
  7. SENNA ALEXANDRINA [Concomitant]
     Dosage: UNK
  8. NORVASC [Concomitant]
     Dosage: UNK
  9. COLACE [Concomitant]
     Dosage: UNK

REACTIONS (1)
  - SKIN INFECTION [None]
